FAERS Safety Report 9722505 (Version 1)
Quarter: 2013Q4

REPORT INFORMATION
  Report Type: Spontaneous
  Country: US (occurrence: US)
  Receive Date: 20131202
  Receipt Date: 20131202
  Transmission Date: 20140711
  Serious: Yes (Other)
  Sender: FDA-Public Use
  Company Number: US-JNJFOC-20131115879

PATIENT
  Sex: Female

DRUGS (3)
  1. REMICADE [Suspect]
     Indication: CROHN^S DISEASE
     Route: 042
  2. HUMIRA [Suspect]
     Indication: CROHN^S DISEASE
     Route: 065
  3. CIMZIA [Suspect]
     Indication: CROHN^S DISEASE
     Route: 065

REACTIONS (4)
  - Hypoaesthesia [Unknown]
  - Abscess [Unknown]
  - Adverse drug reaction [Unknown]
  - Exposure during pregnancy [Unknown]
